FAERS Safety Report 9960578 (Version 1)
Quarter: 2014Q1

REPORT INFORMATION
  Report Type: Spontaneous
  Country: US (occurrence: None)
  Receive Date: 20140228
  Receipt Date: 20140228
  Transmission Date: 20141002
  Serious: Yes (Other)
  Sender: FDA-Public Use
  Company Number: JK1231(15)

PATIENT
  Sex: Female

DRUGS (1)
  1. RICOLA SUGAR FREE SWISS HERB DROPS [Suspect]
     Indication: OROPHARYNGEAL PAIN
     Dosage: 1-3 DROPS / 2 HOURS

REACTIONS (1)
  - Dental caries [None]
